FAERS Safety Report 15842785 (Version 1)
Quarter: 2019Q1

REPORT INFORMATION
  Report Type: Spontaneous
  Country: US (occurrence: US)
  Receive Date: 20190118
  Receipt Date: 20190118
  Transmission Date: 20190417
  Serious: Yes (Disabling, Other)
  Sender: FDA-Public Use
  Company Number: None

PATIENT
  Age: 69 Year
  Sex: Female
  Weight: 58.5 kg

DRUGS (6)
  1. PROLIA [Suspect]
     Active Substance: DENOSUMAB
     Indication: OSTEOPOROSIS
     Dosage: ?          OTHER FREQUENCY:TWICE A YEAR;?
     Route: 030
     Dates: start: 20181017, end: 20181017
  2. ATIVAN [Concomitant]
     Active Substance: LORAZEPAM
  3. CHLORHEXIDINE GLUCONATE RINSE (FOR JAW PROBLEM) [Concomitant]
  4. ROSUVASTATIN CALCIUM (CRESTOR) [Concomitant]
  5. ESTRADIOL TRANSDERMAL SYSTEM [Concomitant]
     Active Substance: ESTRADIOL
  6. VITAMIN D [Concomitant]
     Active Substance: CHOLECALCIFEROL

REACTIONS (3)
  - Osteonecrosis of jaw [None]
  - Stress fracture [None]
  - Foot fracture [None]

NARRATIVE: CASE EVENT DATE: 20181116
